FAERS Safety Report 8583154-5 (Version None)
Quarter: 2012Q3

REPORT INFORMATION
  Report Type: 
  Country: None (occurrence: None)
  Receive Date: 20120727
  Receipt Date: 20120718
  Transmission Date: 20120928
  Serious: Yes (Other)
  Sender: FDA-Public Use
  Company Number: 2012AP002149

PATIENT
  Age: 51 Year
  Sex: Female

DRUGS (7)
  1. AMOXICILLIN [Concomitant]
  2. CHARCOAL PREPARATIONS (CHARCOAL PREPARATIONS) [Concomitant]
  3. PERINDOPRIL ERBUMINE [Suspect]
     Indication: PRODUCT USED FOR UNKNOWN INDICATION
     Dates: start: 20050614
  4. DICLOFENAC SODIUM [Concomitant]
  5. ANTIBIOTICS (ANTIBIOTICS) [Concomitant]
  6. ASPIRIN [Concomitant]
  7. ACETAMINOPHEN [Concomitant]

REACTIONS (3)
  - FAECES DISCOLOURED [None]
  - ABNORMAL FAECES [None]
  - MATERNAL EXPOSURE DURING PREGNANCY [None]
